FAERS Safety Report 5032942-0 (Version None)
Quarter: 2006Q2

REPORT INFORMATION
  Report Type: 
  Country: None (occurrence: None)
  Receive Date: 20060428
  Receipt Date: 20051202
  Transmission Date: 20061013
  Serious: Yes (Other)
  Sender: FDA-Public Use
  Company Number: 200511738BBE

PATIENT
  Sex: Female

DRUGS (5)
  1. GAMUNEX [Suspect]
     Dosage: SEE IMAGE
     Route: 042
     Dates: start: 20050622
  2. GAMUNEX [Suspect]
     Dates: start: 20050622
  3. GAMUNEX [Suspect]
     Dates: start: 20050720
  4. GAMUNEX [Suspect]
     Dates: start: 20050810
  5. GAMUNEX [Suspect]
     Dates: start: 20050810

REACTIONS (7)
  - ARTHRALGIA [None]
  - HEADACHE [None]
  - MALAISE [None]
  - MENINGITIS ASEPTIC [None]
  - OEDEMA PERIPHERAL [None]
  - PYREXIA [None]
  - RASH GENERALISED [None]
